FAERS Safety Report 21982695 (Version 1)
Quarter: 2023Q1

REPORT INFORMATION
  Report Type: Spontaneous
  Country: US (occurrence: US)
  Receive Date: 20230213
  Receipt Date: 20230213
  Transmission Date: 20230418
  Serious: Yes (Other)
  Sender: FDA-Public Use
  Company Number: US-STRIDES ARCOLAB LIMITED-2023SP002016

PATIENT

DRUGS (4)
  1. RANITIDINE [Suspect]
     Active Substance: RANITIDINE
     Indication: Product used for unknown indication
     Dosage: UNK (GENERIC RANITIDINE, PRESCRIPTION)
     Route: 065
     Dates: start: 1984, end: 2012
  2. RANITIDINE [Suspect]
     Active Substance: RANITIDINE
     Dosage: UNK (GENERIC RANITIDINE, OVER THE COUNTER)
     Route: 065
     Dates: start: 1984, end: 2012
  3. RANITIDINE [Suspect]
     Active Substance: RANITIDINE
     Dosage: UNK (ZANTAC, PRESCRIPTION)
     Route: 065
     Dates: start: 1984, end: 2012
  4. RANITIDINE [Suspect]
     Active Substance: RANITIDINE
     Dosage: UNK (ZANTAC, OVER THE COUNTER)
     Route: 065
     Dates: start: 1984, end: 2012

REACTIONS (2)
  - Oesophageal carcinoma [Unknown]
  - Bladder cancer [Unknown]

NARRATIVE: CASE EVENT DATE: 20120101
